FAERS Safety Report 9774258 (Version 2)
Quarter: 2013Q4

REPORT INFORMATION
  Report Type: Report from Study
  Country: DE (occurrence: DE)
  Receive Date: 20131220
  Receipt Date: 20131220
  Transmission Date: 20140711
  Serious: Yes (Death, Hospitalization)
  Sender: FDA-Public Use
  Company Number: DE-ROCHE-1300969

PATIENT
  Age: 78 Year
  Sex: Male
  Weight: 88.2 kg

DRUGS (15)
  1. BEVACIZUMAB [Suspect]
     Indication: COLON CANCER
     Route: 042
     Dates: start: 20130510, end: 20131030
  2. CAPECITABINE [Suspect]
     Indication: PRODUCT USED FOR UNKNOWN INDICATION
     Route: 065
  3. OXALIPLATIN [Suspect]
     Indication: PRODUCT USED FOR UNKNOWN INDICATION
     Route: 065
  4. DOMPERIDON [Concomitant]
     Indication: PROPHYLAXIS OF NAUSEA AND VOMITING
     Route: 048
     Dates: start: 20130515
  5. ONDANSETRON [Concomitant]
     Indication: PROPHYLAXIS OF NAUSEA AND VOMITING
     Route: 048
     Dates: start: 20130415
  6. METOCLOPRAMIDE [Concomitant]
     Indication: PROPHYLAXIS OF NAUSEA AND VOMITING
     Route: 054
     Dates: start: 20130514
  7. MACROGOL [Concomitant]
     Indication: CONSTIPATION
     Route: 048
     Dates: start: 20130430
  8. BISOPROLOL [Concomitant]
     Indication: HYPERTENSION
     Route: 048
     Dates: start: 20130510
  9. PANTOPRAZOL [Concomitant]
     Route: 048
     Dates: start: 20130508
  10. XIPAMID [Concomitant]
     Indication: HYPERTENSION
     Route: 048
     Dates: start: 20130529
  11. NOVAMINSULFON [Concomitant]
     Indication: PAIN
     Route: 048
     Dates: start: 20130621
  12. VOLTAREN [Concomitant]
     Indication: PAIN
     Route: 061
     Dates: start: 20130621
  13. IBUPROFEN [Concomitant]
     Indication: PAIN
     Route: 048
     Dates: start: 20130621
  14. ARANESP [Concomitant]
     Indication: ANAEMIA
     Route: 058
     Dates: start: 20130816, end: 20131030
  15. TORASEMIDE [Concomitant]
     Indication: OEDEMA
     Route: 048
     Dates: start: 20130924

REACTIONS (3)
  - Myocardial infarction [Fatal]
  - Infection [Not Recovered/Not Resolved]
  - Pleural effusion [Unknown]
